FAERS Safety Report 7693050-3 (Version None)
Quarter: 2011Q3

REPORT INFORMATION
  Report Type: 
  Country: None (occurrence: None)
  Receive Date: 20110819
  Receipt Date: 20110816
  Transmission Date: 20111222
  Serious: Yes (Other)
  Sender: FDA-Public Use
  Company Number: US-PFIZER INC-2011189567

PATIENT
  Sex: Male

DRUGS (1)
  1. ALPRAZOLAM [Suspect]
     Dosage: UNK

REACTIONS (6)
  - DYSPNOEA [None]
  - DYSKINESIA [None]
  - HEADACHE [None]
  - CHOKING [None]
  - PYREXIA [None]
  - BURNING SENSATION [None]
